FAERS Safety Report 14678303 (Version 1)
Quarter: 2018Q1

REPORT INFORMATION
  Report Type: Spontaneous
  Country: US (occurrence: US)
  Receive Date: 20180326
  Receipt Date: 20180326
  Transmission Date: 20180509
  Serious: No
  Sender: FDA-Public Use
  Company Number: US-TEVA-2018-US-874207

PATIENT
  Sex: Male

DRUGS (1)
  1. DILTIAZEM. [Suspect]
     Active Substance: DILTIAZEM
     Route: 065

REACTIONS (2)
  - Product use complaint [Unknown]
  - Wrong technique in product usage process [Unknown]
